FAERS Safety Report 6011462-0 (Version None)
Quarter: 2008Q4

REPORT INFORMATION
  Report Type: 
  Country: None (occurrence: None)
  Receive Date: 20081218
  Receipt Date: 20070612
  Transmission Date: 20090506
  Serious: Yes (Death)
  Sender: FDA-Public Use
  Company Number: NL-ROCHE-501871

PATIENT
  Sex: Female

DRUGS (2)
  1. XELODA [Suspect]
     Route: 048
     Dates: start: 20070512
  2. OXALIPLATIN [Suspect]
     Dosage: FORM INFUSION POWDER. DOSAGE REGIMEN REPORTED AS 210 (UNITS NOT REPORTED)
     Route: 042
     Dates: start: 20070502

REACTIONS (3)
  - DEATH [None]
  - MUCOSAL INFLAMMATION [None]
  - SEPSIS [None]
